FAERS Safety Report 20958036 (Version 1)
Quarter: 2022Q2

REPORT INFORMATION
  Report Type: Spontaneous
  Country: US (occurrence: None)
  Receive Date: 20220614
  Receipt Date: 20220614
  Transmission Date: 20220720
  Serious: Yes (Death)
  Sender: FDA-Public Use
  Company Number: None

PATIENT
  Sex: Female

DRUGS (2)
  1. ZOLEDRONIC ACID [Suspect]
     Active Substance: ZOLEDRONIC ACID
     Indication: Senile osteoporosis
     Dosage: 5 MG/100ML ?INFUSE 100 ML INTRAVENOUSLY ONCE A YEAR?
     Route: 042
     Dates: start: 20200220
  2. SYNVISC [Concomitant]

REACTIONS (1)
  - Death [None]
